FAERS Safety Report 5846025-0 (Version None)
Quarter: 2008Q3

REPORT INFORMATION
  Report Type: 
  Country: None (occurrence: None)
  Receive Date: 20080814
  Receipt Date: 20080807
  Transmission Date: 20090109
  Serious: Yes (Other)
  Sender: FDA-Public Use
  Company Number: MY-PFIZER INC-2008061439

PATIENT
  Age: 65 Year
  Sex: Male

DRUGS (3)
  1. CAMPTOSAR [Suspect]
     Indication: COLORECTAL CANCER
     Route: 042
  2. LEUCOVORIN CALCIUM [Suspect]
     Indication: COLORECTAL CANCER
     Route: 042
  3. FLUOROURACIL [Suspect]
     Indication: COLORECTAL CANCER
     Route: 042

REACTIONS (1)
  - MEMORY IMPAIRMENT [None]
